FAERS Safety Report 20092107 (Version 2)
Quarter: 2021Q4

REPORT INFORMATION
  Report Type: Spontaneous
  Country: NL (occurrence: NL)
  Receive Date: 20211119
  Receipt Date: 20211129
  Transmission Date: 20220303
  Serious: Yes (Other)
  Sender: FDA-Public Use
  Company Number: NL-GLAXOSMITHKLINE-NL2021EME193053

PATIENT
  Age: 30 Year
  Sex: Male

DRUGS (4)
  1. PAROXETINE [Suspect]
     Active Substance: PAROXETINE
     Indication: Stress at work
     Dosage: 9.4 MILLIGRAM
  2. PAROXETINE [Suspect]
     Active Substance: PAROXETINE
     Dosage: 9.6 MILLIGRAM
  3. PAROXETINE [Suspect]
     Active Substance: PAROXETINE
     Dosage: 9.8 MILLIGRAM
  4. PAROXETINE [Suspect]
     Active Substance: PAROXETINE
     Indication: Stress at work
     Dosage: 10 MILLIGRAM (10 MG)
     Dates: start: 2020, end: 202012

REACTIONS (18)
  - Suicidal ideation [Not Recovered/Not Resolved]
  - Disability [Unknown]
  - Musculoskeletal stiffness [Unknown]
  - Limb discomfort [Unknown]
  - Bedridden [Not Recovered/Not Resolved]
  - Derealisation [Unknown]
  - Muscle spasms [Unknown]
  - Pain [Unknown]
  - Electric shock sensation [Unknown]
  - Paraesthesia [Recovering/Resolving]
  - Skin burning sensation [Unknown]
  - Neuralgia [Not Recovered/Not Resolved]
  - Depression [Unknown]
  - Walking disability [Not Recovered/Not Resolved]
  - Muscle contractions involuntary [Not Recovered/Not Resolved]
  - Burning sensation [Not Recovered/Not Resolved]
  - Myalgia [Not Recovered/Not Resolved]
  - Condition aggravated [Not Recovered/Not Resolved]
